FAERS Safety Report 18603437 (Version 2)
Quarter: 2021Q1

REPORT INFORMATION
  Report Type: Report from Study
  Country: None (occurrence: US)
  Receive Date: 20201210
  Receipt Date: 20210223
  Transmission Date: 20210419
  Serious: Yes (Other)
  Sender: FDA-Public Use
  Company Number: US-ABBVIE-20K-163-3540317-00

PATIENT
  Age: 60 Year
  Sex: Male

DRUGS (2)
  1. HUMIRA [Suspect]
     Active Substance: ADALIMUMAB
     Indication: RHEUMATOID ARTHRITIS
     Route: 058
     Dates: start: 20200822, end: 2020
  2. HUMIRA [Suspect]
     Active Substance: ADALIMUMAB
     Route: 058
     Dates: start: 20201203

REACTIONS (18)
  - Loss of personal independence in daily activities [Not Recovered/Not Resolved]
  - Infection [Unknown]
  - Pain in extremity [Unknown]
  - Walking aid user [Not Recovered/Not Resolved]
  - Joint stiffness [Recovered/Resolved]
  - Fall [Unknown]
  - Intervertebral disc protrusion [Unknown]
  - Unevaluable event [Unknown]
  - Joint stiffness [Unknown]
  - Joint swelling [Unknown]
  - Arthralgia [Recovered/Resolved]
  - Injection site pain [Recovering/Resolving]
  - Gait disturbance [Not Recovered/Not Resolved]
  - Joint range of motion decreased [Unknown]
  - Arthralgia [Unknown]
  - Head injury [Unknown]
  - Device issue [Unknown]
  - Nasopharyngitis [Unknown]

NARRATIVE: CASE EVENT DATE: 2020
